FAERS Safety Report 13064227 (Version 2)
Quarter: 2017Q1

REPORT INFORMATION
  Report Type: Report from Study
  Country: MX (occurrence: MX)
  Receive Date: 20161227
  Receipt Date: 20170109
  Transmission Date: 20170428
  Serious: Yes (Other)
  Sender: FDA-Public Use
  Company Number: PHHY2016MX177989

PATIENT
  Sex: Female
  Weight: 50 kg

DRUGS (2)
  1. TEGRETOL [Suspect]
     Active Substance: CARBAMAZEPINE
     Dosage: UNK
     Route: 065
  2. TEGRETOL [Suspect]
     Active Substance: CARBAMAZEPINE
     Indication: EPILEPSY
     Dosage: 3.5 DF, ( 1 AND ? IN THE MORNING AND 2 TABLETS AT NIGHT)
     Route: 065
     Dates: start: 1979

REACTIONS (7)
  - Injury [Unknown]
  - Epilepsy [Unknown]
  - Arrhythmia [Not Recovered/Not Resolved]
  - Fall [Unknown]
  - Aphasia [Unknown]
  - Embolism [Unknown]
  - Hypokinesia [Unknown]

NARRATIVE: CASE EVENT DATE: 2000
